FAERS Safety Report 9644056 (Version 1)
Quarter: 2013Q4

REPORT INFORMATION
  Report Type: Spontaneous
  Country: FR (occurrence: FR)
  Receive Date: 20131024
  Receipt Date: 20131024
  Transmission Date: 20140711
  Serious: Yes (Hospitalization)
  Sender: FDA-Public Use
  Company Number: FR-MYLANLABS-2013S1023252

PATIENT
  Age: 54 Year
  Sex: Male

DRUGS (7)
  1. BACLOFEN [Suspect]
     Indication: ALCOHOLISM
     Dosage: 450 MG/DAY
     Route: 065
  2. SEROPLEX [Concomitant]
     Route: 065
  3. TAHOR [Concomitant]
     Route: 065
  4. CARDENSIEL [Concomitant]
     Route: 065
  5. LASILIX [Concomitant]
     Route: 065
  6. REVIA [Concomitant]
     Route: 065
  7. AOTAL [Concomitant]
     Route: 065

REACTIONS (4)
  - Respiratory depression [Recovering/Resolving]
  - Delirium [Recovering/Resolving]
  - Respiratory acidosis [Recovering/Resolving]
  - Overdose [Recovering/Resolving]
